FAERS Safety Report 7131678-X (Version None)
Quarter: 2010Q4

REPORT INFORMATION
  Report Type: 
  Country: None (occurrence: None)
  Receive Date: 20101201
  Receipt Date: 20101122
  Transmission Date: 20110411
  Serious: Yes (Hospitalization)
  Sender: FDA-Public Use
  Company Number: CG-MERCK-1011USA03251

PATIENT
  Age: 40 Year
  Sex: Female
  Weight: 84 kg

DRUGS (1)
  1. STROMECTOL [Suspect]
     Indication: ONCHOCERCIASIS
     Route: 048
     Dates: start: 20101016, end: 20101016

REACTIONS (7)
  - ABNORMAL BEHAVIOUR [None]
  - AGITATION [None]
  - COMA [None]
  - ENCEPHALOPATHY [None]
  - HYPERTENSION [None]
  - OEDEMA [None]
  - PYREXIA [None]
